FAERS Safety Report 8266963-1 (Version None)
Quarter: 2012Q2

REPORT INFORMATION
  Report Type: 
  Country: None (occurrence: None)
  Receive Date: 20120405
  Receipt Date: 20120405
  Transmission Date: 20120825
  Serious: No
  Sender: FDA-Public Use
  Company Number: None

PATIENT
  Age: 60 Year
  Sex: Female
  Weight: 70.3075 kg

DRUGS (2)
  1. WELCHOL [Suspect]
     Indication: BLOOD GLUCOSE INCREASED
     Dosage: 1 PACKET 1 A DAY MOUTH
     Route: 048
  2. WELCHOL [Suspect]
     Indication: BLOOD CHOLESTEROL INCREASED
     Dosage: 1 PACKET 1 A DAY MOUTH
     Route: 048

REACTIONS (3)
  - THROAT IRRITATION [None]
  - PRODUCT SOLUBILITY ABNORMAL [None]
  - GASTROOESOPHAGEAL REFLUX DISEASE [None]
